FAERS Safety Report 20193512 (Version 3)
Quarter: 2022Q2

REPORT INFORMATION
  Report Type: Spontaneous
  Country: US (occurrence: US)
  Receive Date: 20211216
  Receipt Date: 20220609
  Transmission Date: 20220720
  Serious: No
  Sender: FDA-Public Use
  Company Number: US-GLENMARK PHARMACEUTICALS-2021GMK068029

PATIENT

DRUGS (5)
  1. AZELAIC ACID [Suspect]
     Active Substance: AZELAIC ACID
     Indication: Rosacea
     Dosage: UNK UNK, OD (1ST TUBE)
     Route: 061
     Dates: start: 20190710
  2. AZELAIC ACID [Suspect]
     Active Substance: AZELAIC ACID
     Dosage: UNK UNK, OD (SECOND TUBE)
     Route: 065
     Dates: start: 20200721
  3. AZELAIC ACID [Suspect]
     Active Substance: AZELAIC ACID
     Dosage: UNK UNK, OD (THIRD TUBE)
     Route: 061
     Dates: start: 20210608
  4. AZELAIC ACID [Suspect]
     Active Substance: AZELAIC ACID
     Dosage: UNK UNK, OD (FOURTH TUBE)
     Route: 061
     Dates: start: 20211202
  5. GABAPENTIN [Concomitant]
     Active Substance: GABAPENTIN
     Indication: Pain
     Dosage: UNK
     Route: 065

REACTIONS (6)
  - Herpes zoster [Unknown]
  - Inappropriate schedule of product administration [Unknown]
  - Eyelid pain [Recovered/Resolved]
  - Eyelids pruritus [Recovered/Resolved]
  - Product container issue [Unknown]
  - Product packaging quantity issue [Unknown]

NARRATIVE: CASE EVENT DATE: 20200721
